FAERS Safety Report 8488985-8 (Version None)
Quarter: 2012Q3

REPORT INFORMATION
  Report Type: 
  Country: None (occurrence: None)
  Receive Date: 20120705
  Receipt Date: 20120702
  Transmission Date: 20120928
  Serious: No
  Sender: FDA-Public Use
  Company Number: US-PFIZER INC-2012158844

PATIENT
  Sex: Female
  Weight: 74.83 kg

DRUGS (1)
  1. ADVIL CONGESTION RELIEF [Suspect]
     Indication: NASAL CONGESTION
     Dosage: 200/10 MG, AS NEEDED
     Route: 048
     Dates: start: 20120701, end: 20120701

REACTIONS (1)
  - DRUG INEFFECTIVE [None]
